FAERS Safety Report 10050186 (Version 1)
Quarter: 2014Q2

REPORT INFORMATION
  Report Type: Spontaneous
  Country: BR (occurrence: BR)
  Receive Date: 20140401
  Receipt Date: 20140401
  Transmission Date: 20141212
  Serious: Yes (Other)
  Sender: FDA-Public Use
  Company Number: BR-ASTRAZENECA-2014SE21106

PATIENT
  Age: 48 Year
  Sex: Male
  Weight: 72 kg

DRUGS (11)
  1. SYMBICORT TURBUHALER [Suspect]
     Indication: BRONCHIECTASIS
     Dosage: 320/9 MCG TWO INHALATIONS/TID
     Route: 055
     Dates: start: 20140320
  2. SYMBICORT TURBUHALER [Suspect]
     Indication: EMPHYSEMA
     Dosage: 320/9 MCG TWO INHALATIONS/TID
     Route: 055
     Dates: start: 20140320
  3. PHYSIOLOGIC SALINE SOLUTION [Concomitant]
     Indication: BRONCHIECTASIS
     Dosage: HYPERTONIC
     Route: 055
  4. PHYSIOLOGIC SALINE SOLUTION [Concomitant]
     Indication: EMPHYSEMA
     Dosage: HYPERTONIC
     Route: 055
  5. FLUIMUCIL D [Concomitant]
     Indication: BRONCHIECTASIS
  6. FLUIMUCIL D [Concomitant]
     Indication: EMPHYSEMA
  7. AZITHROMYCIN [Concomitant]
     Indication: BRONCHIECTASIS
     Route: 048
  8. AZITHROMYCIN [Concomitant]
     Indication: EMPHYSEMA
     Route: 048
  9. UNSPECIFIED ANTIBIOTICS [Concomitant]
     Route: 042
  10. OXYGEN [Concomitant]
  11. OTHER UNSPECIFIED MEDICATION [Concomitant]

REACTIONS (2)
  - Oxygen saturation decreased [Not Recovered/Not Resolved]
  - Dyspnoea [Not Recovered/Not Resolved]
